FAERS Safety Report 21900590 (Version 1)
Quarter: 2023Q1

REPORT INFORMATION
  Report Type: Spontaneous
  Country: US (occurrence: US)
  Receive Date: 20230123
  Receipt Date: 20230123
  Transmission Date: 20230417
  Serious: No
  Sender: FDA-Public Use
  Company Number: US-NOVOPROD-972264

PATIENT
  Sex: Female

DRUGS (3)
  1. OZEMPIC [Suspect]
     Active Substance: SEMAGLUTIDE
     Indication: Weight control
     Dosage: 0.5 MG
     Route: 058
     Dates: start: 20220814, end: 20220821
  2. OZEMPIC [Suspect]
     Active Substance: SEMAGLUTIDE
     Indication: Polycystic ovaries
  3. VYVANSE [Suspect]
     Active Substance: LISDEXAMFETAMINE DIMESYLATE
     Indication: Product used for unknown indication
     Dosage: 50MG
     Route: 048
     Dates: start: 2016

REACTIONS (5)
  - Mania [Recovered/Resolved]
  - Nausea [Recovered/Resolved]
  - Drug interaction [Unknown]
  - Off label use [Recovered/Resolved]
  - Inappropriate schedule of product administration [Unknown]

NARRATIVE: CASE EVENT DATE: 20220814
